FAERS Safety Report 24033501 (Version 1)
Quarter: 2024Q3

REPORT INFORMATION
  Report Type: Spontaneous
  Country: US (occurrence: US)
  Receive Date: 20240701
  Receipt Date: 20240701
  Transmission Date: 20241017
  Serious: No
  Sender: UCB
  Company Number: US-UCBSA-2024021771

PATIENT
  Sex: Female
  Weight: 64.41 kg

DRUGS (4)
  1. NAYZILAM [Suspect]
     Active Substance: MIDAZOLAM
     Indication: Epilepsy
     Dosage: 5 MILLIGRAM, REPEAT AFTER 10MIN IF NEED
     Route: 045
  2. NAYZILAM [Suspect]
     Active Substance: MIDAZOLAM
     Indication: Seizure
  3. CLONAZEPAM [Suspect]
     Active Substance: CLONAZEPAM
     Indication: Product used for unknown indication
     Dosage: 0.5 MG TABLET, 1 TABLET AT BEDTIME ORALLY ONCE A DAY, NOTES: PRN
     Route: 048
  4. LAMOTRIGINE EXTENDED RELEASE [Suspect]
     Active Substance: LAMOTRIGINE
     Indication: Product used for unknown indication
     Dosage: 2 DOSAGE FORM, ONCE DAILY (QD)
     Route: 048

REACTIONS (1)
  - Insomnia [Recovered/Resolved]

NARRATIVE: CASE EVENT DATE: 20210101
